FAERS Safety Report 13284805 (Version 4)
Quarter: 2017Q3

REPORT INFORMATION
  Report Type: Report from Study
  Country: JP (occurrence: JP)
  Receive Date: 20170301
  Receipt Date: 20170914
  Transmission Date: 20171127
  Serious: No
  Sender: FDA-Public Use
  Company Number: JP-BRISTOL-MYERS SQUIBB COMPANY-BMS-2017-010243

PATIENT
  Age: 63 Year
  Sex: Male

DRUGS (1)
  1. NIVOLUMAB [Suspect]
     Active Substance: NIVOLUMAB
     Indication: RENAL CELL CARCINOMA
     Dosage: 3 MG/KG, Q2WK
     Route: 041
     Dates: start: 20161031, end: 20161212

REACTIONS (2)
  - Dyspnoea [Recovering/Resolving]
  - Guttate psoriasis [Recovering/Resolving]

NARRATIVE: CASE EVENT DATE: 20161212
